FAERS Safety Report 8159292-8 (Version None)
Quarter: 2012Q1

REPORT INFORMATION
  Report Type: 
  Country: None (occurrence: None)
  Receive Date: 20120223
  Receipt Date: 20120217
  Transmission Date: 20120608
  Serious: Yes (Other)
  Sender: FDA-Public Use
  Company Number: SE-AMGEN-SWESP2012010206

PATIENT
  Age: 43 Year
  Sex: Male

DRUGS (3)
  1. CINACALCET HYDROCHLORIDE [Suspect]
     Dosage: 30 MG, UNK
  2. CINACALCET HYDROCHLORIDE [Suspect]
     Dosage: 60 MG, UNK
  3. CINACALCET HYDROCHLORIDE [Suspect]
     Indication: HYPERPARATHYROIDISM SECONDARY
     Dosage: 120 MG, UNK
     Dates: start: 20100101

REACTIONS (3)
  - RENAL TRANSPLANT [None]
  - PANCREAS TRANSPLANT [None]
  - HYPERCALCAEMIA [None]
